FAERS Safety Report 4395484-1 (Version None)
Quarter: 2004Q3

REPORT INFORMATION
  Report Type: 
  Country: None (occurrence: None)
  Receive Date: 20040707
  Receipt Date: 20040621
  Transmission Date: 20050211
  Serious: Yes (Disabling)
  Sender: FDA-Public Use
  Company Number: T04-AUT-02502-01

PATIENT
  Age: 38 Year
  Sex: Female

DRUGS (6)
  1. ESCITALOPRAM OXALATE [Suspect]
     Dosage: 20 MG QD PO
     Route: 048
     Dates: start: 20040419, end: 20040519
  2. ESCITALOPRAM OXALATE [Suspect]
     Dosage: 10 MG QDPO
     Route: 048
     Dates: start: 20040414, end: 20040418
  3. TOLVON (MIANSERIN HYDROCHLORIDE) [Suspect]
     Dosage: 120 MG QD PO
     Route: 048
     Dates: start: 20040502, end: 20040517
  4. OXAZEPAM [Suspect]
     Dosage: 150 MG QD PO
     Route: 048
     Dates: start: 20040505, end: 20040519
  5. PANTOLAC (PANTHENOL) [Suspect]
  6. DOMINAL (PROTHIPENDYL HYDROCHLORIDE) [Concomitant]

REACTIONS (6)
  - ALANINE AMINOTRANSFERASE INCREASED [None]
  - ASPARTATE AMINOTRANSFERASE INCREASED [None]
  - BLOOD ALKALINE PHOSPHATASE INCREASED [None]
  - BLOOD CHOLESTEROL INCREASED [None]
  - BLOOD TRIGLYCERIDES INCREASED [None]
  - METABOLIC DISORDER [None]
